FAERS Safety Report 8564784-3 (Version None)
Quarter: 2012Q3

REPORT INFORMATION
  Report Type: 
  Country: None (occurrence: None)
  Receive Date: 20120803
  Receipt Date: 20120726
  Transmission Date: 20120928
  Serious: Yes (Hospitalization, Other)
  Sender: FDA-Public Use
  Company Number: US-US-EMD SERONO, INC.-7146683

PATIENT
  Sex: Female
  Weight: 50 kg

DRUGS (7)
  1. REBIF [Suspect]
     Route: 058
     Dates: start: 20120201
  2. EXCEDRINE [Concomitant]
     Indication: PREMEDICATION
  3. LEXAPRO [Concomitant]
     Indication: DEPRESSION
  4. REBIF [Suspect]
     Indication: MULTIPLE SCLEROSIS
     Route: 058
     Dates: start: 20021010, end: 20111101
  5. LISINOPRIL [Concomitant]
     Indication: HYPERTENSION
  6. IBUPROFEN [Concomitant]
     Indication: PREMEDICATION
     Route: 048
  7. PROTONIX [Concomitant]
     Indication: GASTROOESOPHAGEAL REFLUX DISEASE
     Route: 048

REACTIONS (3)
  - COAGULOPATHY [None]
  - VASCULITIS [None]
  - SKIN ULCER [None]
